FAERS Safety Report 14804631 (Version 1)
Quarter: 2018Q2

REPORT INFORMATION
  Report Type: Spontaneous
  Country: US (occurrence: US)
  Receive Date: 20180417
  Receipt Date: 20180417
  Transmission Date: 20180711
  Serious: Yes (Hospitalization)
  Sender: FDA-Public Use
  Company Number: None

PATIENT
  Age: 18 Year
  Sex: Female
  Weight: 64 kg

DRUGS (2)
  1. DOXORUBICIN HYDROCHLORIDE. [Suspect]
     Active Substance: DOXORUBICIN HYDROCHLORIDE
     Dates: end: 20180317
  2. IFOSFAMIDE. [Suspect]
     Active Substance: IFOSFAMIDE
     Dates: end: 20180228

REACTIONS (10)
  - Cellulitis [None]
  - Tachycardia [None]
  - Pain in extremity [None]
  - Hypotension [None]
  - Staphylococcus test positive [None]
  - Arthralgia [None]
  - Pyrexia [None]
  - Device related infection [None]
  - Muscle oedema [None]
  - Tachypnoea [None]

NARRATIVE: CASE EVENT DATE: 20180406
